FAERS Safety Report 6429555-2 (Version None)
Quarter: 2009Q4

REPORT INFORMATION
  Report Type: 
  Country: None (occurrence: None)
  Receive Date: 20091103
  Receipt Date: 20091021
  Transmission Date: 20100525
  Serious: Yes (Other)
  Sender: FDA-Public Use
  Company Number: SPV1-2009-02104

PATIENT
  Age: 14 Year
  Sex: Male

DRUGS (1)
  1. VYVANSE [Suspect]
     Indication: DRUG USE FOR UNKNOWN INDICATION
     Dosage: 20 MG, 1X/DAY:QD, ORAL; ORAL
     Route: 048
     Dates: start: 20090901

REACTIONS (5)
  - CARDIOMYOPATHY [None]
  - CHEST PAIN [None]
  - LEFT VENTRICULAR FAILURE [None]
  - OFF LABEL USE [None]
  - RIGHT VENTRICULAR FAILURE [None]
